FAERS Safety Report 8538435-8 (Version None)
Quarter: 2012Q3

REPORT INFORMATION
  Report Type: 
  Country: None (occurrence: None)
  Receive Date: 20120712
  Receipt Date: 20120328
  Transmission Date: 20120928
  Serious: Yes (Other)
  Sender: FDA-Public Use
  Company Number: 012096

PATIENT
  Age: 19 Year
  Sex: Female

DRUGS (2)
  1. CYCLOPHOSPHAMIDE [Suspect]
  2. BUSULFEX [Suspect]
     Indication: STEM CELL TRANSPLANT
     Dosage: UNK, INTRAVENOUS
     Route: 042

REACTIONS (2)
  - HYPOGONADISM [None]
  - PRECOCIOUS PUBERTY [None]
